FAERS Safety Report 8201370-9 (Version None)
Quarter: 2012Q1

REPORT INFORMATION
  Report Type: 
  Country: None (occurrence: None)
  Receive Date: 20120312
  Receipt Date: 20120228
  Transmission Date: 20120608
  Serious: No
  Sender: FDA-Public Use
  Company Number: US-B.I. PHARMACEUTICALS,INC./RIDGEFIELD-2012-BP-03762BP

PATIENT
  Sex: Female

DRUGS (11)
  1. PRADAXA [Suspect]
     Indication: THROMBOSIS
     Dosage: 150 MG
     Route: 048
     Dates: start: 20120223, end: 20120226
  2. PREDNISONE TAB [Concomitant]
     Indication: SCLERODERMA
     Dosage: 7 MG
     Route: 048
  3. LAMICTAL [Concomitant]
     Indication: EPILEPSY
     Dosage: 700 MG
     Route: 048
  4. PHENOBARBITAL TAB [Concomitant]
     Indication: EPILEPSY
     Dosage: 259.2 MG
     Route: 048
  5. VITAMIN B-12 [Concomitant]
     Indication: SUPPLEMENTATION THERAPY
     Route: 048
  6. PRILOSEC [Concomitant]
     Indication: GASTROOESOPHAGEAL REFLUX DISEASE
     Dosage: 40 MG
     Route: 048
  7. METHOTREXATE [Concomitant]
     Indication: SCLERODERMA
     Route: 048
  8. NORVASC [Concomitant]
     Indication: RAYNAUD'S PHENOMENON
     Dosage: 5 MG
     Route: 048
  9. MULTI-VITAMIN [Concomitant]
     Indication: SUPPLEMENTATION THERAPY
     Route: 048
  10. KEPPRA [Concomitant]
     Indication: EPILEPSY
     Dosage: 3500 MG
     Route: 048
  11. FOLIC ACID [Concomitant]
     Indication: SUPPLEMENTATION THERAPY
     Dosage: 1000 MCG
     Route: 048

REACTIONS (4)
  - VOMITING [None]
  - FEELING ABNORMAL [None]
  - DIARRHOEA [None]
  - ABDOMINAL DISCOMFORT [None]
